FAERS Safety Report 8885775 (Version 1)
Quarter: 2012Q4

REPORT INFORMATION
  Report Type: 
  Country: US (occurrence: US)
  Receive Date: 20121104
  Receipt Date: 20121104
  Transmission Date: 20130627
  Serious: No
  Sender: FDA-Public Use
  Company Number: US-ASTRAZENECA-2012SE80892

PATIENT
  Age: 61 Year
  Sex: Female

DRUGS (2)
  1. NEXIUM [Suspect]
     Route: 048
  2. PROTONIX [Suspect]
     Route: 065

REACTIONS (6)
  - Dyspepsia [Unknown]
  - Abdominal distension [Unknown]
  - Aphagia [Unknown]
  - Tooth loss [Unknown]
  - Malaise [Unknown]
  - Drug dose omission [Unknown]
